FAERS Safety Report 5407053-2 (Version None)
Quarter: 2007Q3

REPORT INFORMATION
  Report Type: 
  Country: None (occurrence: None)
  Receive Date: 20070803
  Receipt Date: 20070709
  Transmission Date: 20080115
  Serious: Yes (Hospitalization)
  Sender: FDA-Public Use
  Company Number: E2B_00010850

PATIENT
  Age: 43 Year
  Sex: Female

DRUGS (5)
  1. TERBINAFINE HYDROCHLORIDE [Suspect]
     Indication: ONYCHOMYCOSIS
     Dosage: 250 MG, 1 IN 1 D, ORAL
     Route: 048
     Dates: start: 20070424, end: 20070625
  2. CETIRIZIN (CETIRIZINE HYDROCHLORIDE) [Concomitant]
  3. CIPRALEX [Concomitant]
  4. CONCERTA [Concomitant]
  5. RITALIN (METHYLPHENIDATE HYDR0CHLORIDE) [Concomitant]

REACTIONS (1)
  - CHOLESTASIS [None]
